FAERS Safety Report 22071439 (Version 1)
Quarter: 2023Q1

REPORT INFORMATION
  Report Type: Spontaneous
  Country: PT (occurrence: PT)
  Receive Date: 20230307
  Receipt Date: 20230307
  Transmission Date: 20230418
  Serious: Yes (Hospitalization)
  Sender: FDA-Public Use
  Company Number: None

PATIENT
  Age: 24 Year
  Sex: Female

DRUGS (1)
  1. AZITHROMYCIN [Suspect]
     Active Substance: AZITHROMYCIN
     Indication: Tonsillitis
     Dosage: 500 MG, 1X/DAY
     Route: 048
     Dates: start: 20180516, end: 20180521

REACTIONS (7)
  - Oedema peripheral [Recovered/Resolved]
  - Rash pruritic [Recovered/Resolved]
  - Aphthous ulcer [Recovered/Resolved]
  - Oral candidiasis [Recovered/Resolved]
  - Speech disorder [Recovered/Resolved]
  - Off label use [Unknown]
  - Product use issue [Unknown]

NARRATIVE: CASE EVENT DATE: 20180516
